FAERS Safety Report 11513503 (Version 1)
Quarter: 2015Q3

REPORT INFORMATION
  Report Type: Spontaneous
  Country: US (occurrence: None)
  Receive Date: 20150915
  Receipt Date: 20150915
  Transmission Date: 20151125
  Serious: Yes (Other)
  Sender: FDA-Public Use
  Company Number: None

PATIENT
  Age: 28 Year
  Sex: Female
  Weight: 81.65 kg

DRUGS (1)
  1. RID [Suspect]
     Active Substance: PIPERONYL BUTOXIDE\PYRETHRUM EXTRACT
     Indication: LICE INFESTATION
     Dosage: ONE BOX UNKNOWN APPLIED TO A SURFACE, USUALLY THE SKIN

REACTIONS (2)
  - Vomiting [None]
  - Migraine [None]

NARRATIVE: CASE EVENT DATE: 20150910
